FAERS Safety Report 22915376 (Version 4)
Quarter: 2024Q3

REPORT INFORMATION
  Report Type: Spontaneous
  Country: US (occurrence: US)
  Receive Date: 20230907
  Receipt Date: 20240708
  Transmission Date: 20241017
  Serious: Yes (Other)
  Sender: AMGEN
  Company Number: US-AMGEN-USASP2023154770

PATIENT
  Age: 75 Year
  Sex: Female
  Weight: 43.991 kg

DRUGS (3)
  1. PROLIA [Suspect]
     Active Substance: DENOSUMAB
     Indication: Product used for unknown indication
     Dosage: UNK, Q6MO
     Route: 065
  2. PROLIA [Suspect]
     Active Substance: DENOSUMAB
  3. EVENITY [Suspect]
     Active Substance: ROMOSOZUMAB-AQQG
     Indication: Bone density abnormal
     Dosage: UNK, QMO
     Route: 065

REACTIONS (8)
  - Spinal disorder [Unknown]
  - Medical device implantation [Unknown]
  - Bone density decreased [Unknown]
  - COVID-19 [Unknown]
  - Weight decreased [Unknown]
  - Injection site pain [Unknown]
  - Osteoarthritis [Unknown]
  - Drug ineffective [Unknown]

NARRATIVE: CASE EVENT DATE: 20220101
